FAERS Safety Report 15372075 (Version 1)
Quarter: 2018Q4

REPORT INFORMATION
  Report Type: Spontaneous
  Country: None (occurrence: GB)
  Receive Date: 20180911
  Receipt Date: 20180911
  Transmission Date: 20190204
  Serious: Yes (Other)
  Sender: FDA-Public Use
  Company Number: GB-MEDAC PHARMA, INC.-2054841

PATIENT
  Age: 25 Year
  Sex: Male

DRUGS (7)
  1. CISPLATIN. [Suspect]
     Active Substance: CISPLATIN
  2. VINCRISTINE SULFATE. [Suspect]
     Active Substance: VINCRISTINE SULFATE
  3. ETOPOSIDE. [Suspect]
     Active Substance: ETOPOSIDE
  4. BLEOMYCIN [Suspect]
     Active Substance: BLEOMYCIN SULFATE
  5. METHOTREXATE. [Suspect]
     Active Substance: METHOTREXATE
  6. PACLITAXEL. [Suspect]
     Active Substance: PACLITAXEL
  7. IFOSFAMIDE. [Suspect]
     Active Substance: IFOSFAMIDE

REACTIONS (2)
  - Melanocytic naevus [Not Recovered/Not Resolved]
  - Product use in unapproved indication [None]
